FAERS Safety Report 6278245-8 (Version None)
Quarter: 2009Q3

REPORT INFORMATION
  Report Type: 
  Country: None (occurrence: None)
  Receive Date: 20090722
  Receipt Date: 20090715
  Transmission Date: 20100115
  Serious: Yes (Other)
  Sender: FDA-Public Use
  Company Number: US-WYE-H08843809

PATIENT
  Age: 50 Year
  Sex: Male
  Weight: 71 kg

DRUGS (13)
  1. TEMSIROLIMUS [Suspect]
     Indication: RENAL CELL CARCINOMA
     Route: 042
     Dates: start: 20080715
  2. TEMSIROLIMUS [Suspect]
     Dosage: 15 MG WEEKLY FROM AN UNSPECIFIED START DATE TO 16 MAR-2009
     Route: 042
  3. TEMSIROLIMUS [Suspect]
     Dosage: NOT PROVIDED
     Route: 042
     Dates: start: 20090330
  4. PROCHLORPERAZINE EDISYLATE [Concomitant]
  5. LORAZEPAM [Concomitant]
  6. LISINOPRIL [Concomitant]
  7. FLUTICASONE PROPIONATE/SALMETEROL XINAFOATE [Concomitant]
  8. AMOXICILLIN [Concomitant]
  9. PAROXETINE HCL [Concomitant]
  10. HYDROCODONE BITARTRATE + ACETAMINOPHEN [Concomitant]
  11. NICOTINIC ACID [Concomitant]
  12. BEVACIZUMAB [Suspect]
     Indication: RENAL CELL CARCINOMA
     Route: 042
     Dates: start: 20080715, end: 20090316
  13. HYDROMORPHONE HYDROCHLORIDE [Concomitant]

REACTIONS (2)
  - GINGIVAL ULCERATION [None]
  - OSTEONECROSIS [None]
